FAERS Safety Report 7480015-X (Version None)
Quarter: 2011Q2

REPORT INFORMATION
  Report Type: 
  Country: None (occurrence: None)
  Receive Date: 20110516
  Receipt Date: 20100210
  Transmission Date: 20111010
  Serious: No
  Sender: FDA-Public Use
  Company Number: US-BIOGENIDEC-2010BI004937

PATIENT
  Age: 34 Year
  Sex: Female

DRUGS (1)
  1. TYSABRI [Suspect]
     Indication: MULTIPLE SCLEROSIS
     Route: 042
     Dates: start: 20071023

REACTIONS (19)
  - MIGRAINE [None]
  - DEPRESSION [None]
  - NECK PAIN [None]
  - SUICIDAL IDEATION [None]
  - EXERCISE TOLERANCE DECREASED [None]
  - MULTIPLE SCLEROSIS [None]
  - INFLUENZA LIKE ILLNESS [None]
  - PAIN IN EXTREMITY [None]
  - NASOPHARYNGITIS [None]
  - MEMORY IMPAIRMENT [None]
  - DIARRHOEA [None]
  - PERONEAL NERVE PALSY [None]
  - BACK PAIN [None]
  - MULTIPLE SCLEROSIS RELAPSE [None]
  - INSOMNIA [None]
  - FEAR [None]
  - READING DISORDER [None]
  - INFLUENZA [None]
  - CONSTIPATION [None]
